FAERS Safety Report 9971291 (Version 3)
Quarter: 2016Q1

REPORT INFORMATION
  Report Type: Report from Study
  Country: PR (occurrence: PR)
  Receive Date: 20140306
  Receipt Date: 20160201
  Transmission Date: 20160526
  Serious: No
  Sender: FDA-Public Use
  Company Number: PR-ABBVIE-13P-131-1151760-00

PATIENT
  Sex: Female
  Weight: 63.56 kg

DRUGS (1)
  1. HUMIRA [Suspect]
     Active Substance: ADALIMUMAB
     Indication: PSORIASIS
     Route: 058
     Dates: start: 201309, end: 201310

REACTIONS (5)
  - Gait disturbance [Unknown]
  - Pruritus [Unknown]
  - Inflammation [Recovered/Resolved]
  - Hypersensitivity [Unknown]
  - Psoriasis [Recovered/Resolved]
